FAERS Safety Report 19766932 (Version 1)
Quarter: 2021Q3

REPORT INFORMATION
  Report Type: Spontaneous
  Country: FR (occurrence: FR)
  Receive Date: 20210830
  Receipt Date: 20210830
  Transmission Date: 20211014
  Serious: Yes (Disabling)
  Sender: FDA-Public Use
  Company Number: None

PATIENT
  Age: 25 Year
  Sex: Female
  Weight: 54 kg

DRUGS (5)
  1. VID D [Concomitant]
  2. QUERCETIN [Concomitant]
     Active Substance: QUERCETIN
  3. BORAGO OIL [Concomitant]
  4. BETAMETASONE [Suspect]
     Active Substance: BETAMETHASONE
     Indication: ECZEMA
     Dosage: ?          OTHER FREQUENCY:WHEN FLARE OCCURED;?
     Route: 061
     Dates: start: 20200404, end: 20201010
  5. VITAMIN C [Concomitant]
     Active Substance: ASCORBIC ACID

REACTIONS (6)
  - Rash pruritic [None]
  - Rash erythematous [None]
  - Skin warm [None]
  - Insomnia [None]
  - Eczema [None]
  - Body temperature fluctuation [None]

NARRATIVE: CASE EVENT DATE: 20201007
